FAERS Safety Report 11120505 (Version 1)
Quarter: 2015Q2

REPORT INFORMATION
  Report Type: Other
  Country: ES (occurrence: ES)
  Receive Date: 20150518
  Receipt Date: 20150518
  Transmission Date: 20150821
  Serious: Yes (Other)
  Sender: FDA-Public Use
  Company Number: ES-KOWA-15EU000420

PATIENT

DRUGS (2)
  1. LIVAZO [Suspect]
     Active Substance: PITAVASTATIN CALCIUM
     Indication: HYPERTENSION
     Dosage: 2 MG, QD
     Route: 048
     Dates: start: 2015, end: 20150320
  2. REGULATEN PLUS 600MG/12.5MG [Suspect]
     Active Substance: EPROSARTAN MESYLATE\HYDROCHLOROTHIAZIDE
     Indication: HYPERTENSION
     Dosage: 1 DF, QD
     Route: 048
     Dates: start: 2015, end: 20150315

REACTIONS (1)
  - Acute kidney injury [Recovered/Resolved]

NARRATIVE: CASE EVENT DATE: 2015
